FAERS Safety Report 5634494-0 (Version None)
Quarter: 2008Q1

REPORT INFORMATION
  Report Type: 
  Country: None (occurrence: None)
  Receive Date: 20080222
  Receipt Date: 20080211
  Transmission Date: 20080703
  Serious: Yes (Death)
  Sender: FDA-Public Use
  Company Number: SE-WYE-H02631008

PATIENT
  Age: 37 Year
  Sex: Male

DRUGS (4)
  1. EFFEXOR [Suspect]
     Dosage: OVERDOSE AMOUNT WAS 32 TABLETS (4,8 G)
     Route: 048
  2. BUSPIRONE HCL [Suspect]
     Dosage: OVERDOSE AMOUNT WAS 150 MG
     Route: 048
  3. LAMOTRIGINE [Suspect]
     Dosage: OVERDOSE AMOUNT UNKNOWN
     Route: 048
  4. DIAZEPAM [Suspect]
     Dosage: OVERDOSE AMOUNT WAS 150 MG
     Route: 048

REACTIONS (6)
  - ANXIETY [None]
  - CARDIAC ARREST [None]
  - CONVULSION [None]
  - INTENTIONAL OVERDOSE [None]
  - MULTI-ORGAN FAILURE [None]
  - MYDRIASIS [None]
